FAERS Safety Report 9925076 (Version 1)
Quarter: 2014Q1

REPORT INFORMATION
  Report Type: Report from Study
  Country: CA (occurrence: CA)
  Receive Date: 20140226
  Receipt Date: 20140226
  Transmission Date: 20141002
  Serious: Yes (Other)
  Sender: FDA-Public Use
  Company Number: CA-ABBVIE-14P-028-1205014-00

PATIENT
  Sex: Female

DRUGS (2)
  1. HUMIRA [Suspect]
     Indication: RHEUMATOID ARTHRITIS
     Route: 058
     Dates: start: 20120812, end: 20140112
  2. HUMIRA [Suspect]
     Route: 058
     Dates: start: 20140209

REACTIONS (2)
  - Dental caries [Unknown]
  - Tooth extraction [Recovered/Resolved]
